FAERS Safety Report 10399720 (Version 1)
Quarter: 2014Q3

REPORT INFORMATION
  Report Type: Spontaneous
  Country: FR (occurrence: FR)
  Receive Date: 20140821
  Receipt Date: 20140821
  Transmission Date: 20150326
  Serious: Yes (Other)
  Sender: FDA-Public Use
  Company Number: FR-BRISTOL-MYERS SQUIBB COMPANY-21306717

PATIENT
  Age: 67 Year
  Sex: Male

DRUGS (1)
  1. BELATACEPT [Suspect]
     Active Substance: BELATACEPT
     Dates: start: 20130120

REACTIONS (3)
  - Uveitis [Unknown]
  - Interstitial lung disease [Unknown]
  - Cardiac failure [Unknown]
